FAERS Safety Report 13768785 (Version 4)
Quarter: 2017Q3

REPORT INFORMATION
  Report Type: Spontaneous
  Country: US (occurrence: US)
  Receive Date: 20170719
  Receipt Date: 20170928
  Transmission Date: 20171127
  Serious: No
  Sender: FDA-Public Use
  Company Number: US-009507513-1707USA003073

PATIENT
  Age: 18 Year
  Sex: Female
  Weight: 86.62 kg

DRUGS (2)
  1. NEXPLANON [Suspect]
     Active Substance: ETONOGESTREL
     Dosage: ROD, UNK
     Route: 059
     Dates: start: 20170713
  2. NEXPLANON [Suspect]
     Active Substance: ETONOGESTREL
     Dosage: IMPLANT, LEFT ARM IN THE SULCUS BICIPITALIS MEDIALIS (GROOVE BETWEEN BICEPS AND TRICEPS)
     Route: 059
     Dates: start: 20170712, end: 20170713

REACTIONS (2)
  - No adverse event [Unknown]
  - Device expulsion [Recovered/Resolved]

NARRATIVE: CASE EVENT DATE: 20170712
